FAERS Safety Report 5152367-7 (Version None)
Quarter: 2006Q4

REPORT INFORMATION
  Report Type: 
  Country: None (occurrence: None)
  Receive Date: 20061116
  Receipt Date: 20060728
  Transmission Date: 20070319
  Serious: Yes (Hospitalization, Other)
  Sender: FDA-Public Use
  Company Number: CH-ELI_LILLY_AND_COMPANY-CH200607005009

PATIENT
  Age: 47 Year
  Sex: Female

DRUGS (2)
  1. FLUCTINE [Suspect]
     Indication: DEPRESSION
     Dosage: 30 MG, DAILY (1/D)
     Route: 048
     Dates: start: 20060415, end: 20060517
  2. FLUCTINE [Suspect]
     Dosage: 60 MG, DAILY (1/D)
     Route: 048
     Dates: start: 20060518, end: 20060612

REACTIONS (2)
  - CEREBROVASCULAR DISORDER [None]
  - THROMBOTIC STROKE [None]
